FAERS Safety Report 13068688 (Version 2)
Quarter: 2017Q1

REPORT INFORMATION
  Report Type: Spontaneous
  Country: FR (occurrence: FR)
  Receive Date: 20161228
  Receipt Date: 20170313
  Transmission Date: 20170428
  Serious: Yes (Other)
  Sender: FDA-Public Use
  Company Number: FR-PFIZER INC-2016593006

PATIENT
  Age: 74 Year
  Sex: Male

DRUGS (14)
  1. GLUCOPHAGE [Concomitant]
     Active Substance: METFORMIN HYDROCHLORIDE
     Dosage: UNK
     Dates: end: 20161025
  2. TEMERIT [Concomitant]
     Active Substance: NEBIVOLOL
  3. LASILIX FAIBLE [Concomitant]
     Active Substance: FUROSEMIDE
     Dosage: UNK
     Dates: end: 20161025
  4. VICTOZA [Concomitant]
     Active Substance: LIRAGLUTIDE
  5. INSPRA [Suspect]
     Active Substance: EPLERENONE
     Dosage: 25 MG, DAILY
     Route: 048
     Dates: end: 20161115
  6. NOVONORM [Concomitant]
     Active Substance: REPAGLINIDE
     Dosage: UNK
     Dates: end: 20161025
  7. NICORANDIL [Concomitant]
     Active Substance: NICORANDIL
  8. ASPIRIN PROTECT [Concomitant]
     Active Substance: ASPIRIN
  9. PARIET [Concomitant]
     Active Substance: RABEPRAZOLE SODIUM
  10. KEYTRUDA [Suspect]
     Active Substance: PEMBROLIZUMAB
     Indication: MALIGNANT MELANOMA
     Dosage: 200 MG, CYCLIC
     Route: 042
     Dates: start: 20160511, end: 20161115
  11. PROCORALAN [Concomitant]
     Active Substance: IVABRADINE
  12. EFFERALGAN [Concomitant]
     Active Substance: ACETAMINOPHEN
  13. LORATADINE. [Concomitant]
     Active Substance: LORATADINE
  14. TIMOFEROL [Concomitant]
     Active Substance: ASCORBIC ACID\FERROUS SULFATE

REACTIONS (1)
  - Acute kidney injury [Recovering/Resolving]

NARRATIVE: CASE EVENT DATE: 20160910
